FAERS Safety Report 15980904 (Version 1)
Quarter: 2019Q1

REPORT INFORMATION
  Report Type: Spontaneous
  Country: US (occurrence: US)
  Receive Date: 20190218
  Receipt Date: 20190218
  Transmission Date: 20190418
  Serious: No
  Sender: FDA-Public Use
  Company Number: None

PATIENT
  Age: 50 Year
  Sex: Female
  Weight: 50 kg

DRUGS (1)
  1. ARMODAFINIL 150MG [Suspect]
     Active Substance: ARMODAFINIL
     Indication: FATIGUE
     Route: 048
     Dates: start: 20171101, end: 20180201

REACTIONS (2)
  - Headache [None]
  - Product substitution issue [None]

NARRATIVE: CASE EVENT DATE: 20180201
